FAERS Safety Report 20770677 (Version 2)
Quarter: 2022Q2

REPORT INFORMATION
  Report Type: Spontaneous
  Country: DE (occurrence: DE)
  Receive Date: 20220429
  Receipt Date: 20220504
  Transmission Date: 20220721
  Serious: No
  Sender: FDA-Public Use
  Company Number: DE-TEVA-2022-DE-2031802

PATIENT
  Age: 75 Year
  Sex: Male

DRUGS (1)
  1. FOLIC ACID [Suspect]
     Active Substance: FOLIC ACID
     Indication: Prophylaxis
     Dosage: 1-0-0 FOR 14 DAYS
     Route: 065

REACTIONS (3)
  - Pruritus [Recovered/Resolved]
  - Insomnia [Unknown]
  - Pyrexia [Unknown]
